FAERS Safety Report 4269561-X (Version None)
Quarter: 2004Q1

REPORT INFORMATION
  Report Type: 
  Country: None (occurrence: None)
  Receive Date: 20040112
  Receipt Date: 20040106
  Transmission Date: 20041129
  Serious: No
  Sender: FDA-Public Use
  Company Number: 04H-167-0246317-00

PATIENT
  Age: 27 Year
  Sex: Female

DRUGS (1)
  1. PROCHLORPERAZINE EDISYLATE INJ [Suspect]
     Dosage: 12.5 MG, NOT REPORTED, INTRAMUSCULAR
     Route: 030

REACTIONS (6)
  - CYANOSIS [None]
  - DYSTONIA [None]
  - OBSTRUCTIVE AIRWAYS DISORDER [None]
  - OXYGEN SATURATION DECREASED [None]
  - RESPIRATION ABNORMAL [None]
  - STRIDOR [None]
